FAERS Safety Report 9384944 (Version 1)
Quarter: 2013Q3

REPORT INFORMATION
  Report Type: Spontaneous
  Country: US (occurrence: US)
  Receive Date: 20130705
  Receipt Date: 20130705
  Transmission Date: 20140515
  Serious: No
  Sender: FDA-Public Use
  Company Number: US-009507513-1307USA002564

PATIENT
  Sex: Female

DRUGS (3)
  1. FOSAMAX [Suspect]
     Indication: OSTEOPOROSIS
     Dosage: 70 MG, QW, ONCE WEEK TABLET 70 MG
     Route: 048
  2. BUSPAR [Concomitant]
  3. FENTANYL [Concomitant]

REACTIONS (1)
  - Dysphagia [Unknown]
